FAERS Safety Report 4476398-5 (Version None)
Quarter: 2004Q4

REPORT INFORMATION
  Report Type: 
  Country: None (occurrence: None)
  Receive Date: 20041016
  Receipt Date: 20041007
  Transmission Date: 20050328
  Serious: Yes (Other)
  Sender: FDA-Public Use
  Company Number: US-MERCK-0410USA01091

PATIENT
  Age: 60 Year
  Sex: Female

DRUGS (7)
  1. FOSAMAX [Concomitant]
     Route: 048
  2. ATENOLOL [Concomitant]
     Route: 065
  3. FLUOXETINE [Concomitant]
     Route: 065
  4. HYDRODIURIL [Concomitant]
     Route: 048
  5. SINGULAIR [Concomitant]
     Route: 048
  6. VIOXX [Suspect]
     Indication: ARTHRITIS
     Route: 048
     Dates: start: 19990101, end: 20040930
  7. DIOVAN [Concomitant]
     Route: 065

REACTIONS (3)
  - ARTHRALGIA [None]
  - HEART RATE INCREASED [None]
  - MYOCARDIAL INFARCTION [None]
